FAERS Safety Report 16865096 (Version 1)
Quarter: 2019Q3

REPORT INFORMATION
  Report Type: Spontaneous
  Country: US (occurrence: US)
  Receive Date: 20190930
  Receipt Date: 20190930
  Transmission Date: 20191005
  Serious: Yes (Hospitalization)
  Sender: FDA-Public Use
  Company Number: US-TEVA-2019-US-1115551

PATIENT
  Age: 81 Year

DRUGS (1)
  1. METHOTREXATE. [Suspect]
     Active Substance: METHOTREXATE
     Indication: RHEUMATOID ARTHRITIS
     Dosage: 7.5 MILLIGRAM DAILY; RECEIVING METHOTREXATE 7.5MG PILLS DAILY INSTEAD OF WEEKLY FOR ABOUT 13 DAYS (T
     Route: 048

REACTIONS (5)
  - Stomatitis [Unknown]
  - Eating disorder [Unknown]
  - Accidental overdose [Unknown]
  - Inappropriate schedule of product administration [Unknown]
  - Speech disorder [Unknown]
